FAERS Safety Report 7774115-4 (Version None)
Quarter: 2011Q3

REPORT INFORMATION
  Report Type: 
  Country: None (occurrence: None)
  Receive Date: 20110923
  Receipt Date: 20110913
  Transmission Date: 20111222
  Serious: Yes (Death, Hospitalization)
  Sender: FDA-Public Use
  Company Number: CA-JNJFOC-20110710664

PATIENT
  Sex: Female

DRUGS (11)
  1. METHOTREXATE [Concomitant]
  2. FOLIC ACID [Concomitant]
  3. KETOROLAC TROMETHAMINE [Concomitant]
  4. OLANZAPINE [Concomitant]
  5. REMICADE [Suspect]
     Route: 042
     Dates: start: 20080901
  6. LAMOTRIGINE [Concomitant]
  7. REMICADE [Suspect]
     Indication: RHEUMATOID ARTHRITIS
     Route: 042
     Dates: start: 20110602
  8. CYMBALTA [Concomitant]
  9. ZOPICLONE [Concomitant]
  10. VITAMIN D [Concomitant]
  11. SLOW-K [Concomitant]

REACTIONS (2)
  - CELLULITIS [None]
  - DEATH [None]
